FAERS Safety Report 24177923 (Version 1)
Quarter: 2024Q3

REPORT INFORMATION
  Report Type: Report from Study
  Country: US (occurrence: None)
  Receive Date: 20240806
  Receipt Date: 20240806
  Transmission Date: 20241017
  Serious: Yes (Other)
  Sender: ASTRAZENECA
  Company Number: 2022A038790

PATIENT
  Age: 4875 Week
  Sex: Female

DRUGS (1)
  1. CALQUENCE [Suspect]
     Active Substance: ACALABRUTINIB
     Indication: Chronic lymphocytic leukaemia
     Route: 048

REACTIONS (5)
  - Renal disorder [Unknown]
  - Urinary tract infection [Unknown]
  - Pain [Unknown]
  - Insomnia [Unknown]
  - Musculoskeletal discomfort [Unknown]
